FAERS Safety Report 5798157-3 (Version None)
Quarter: 2008Q3

REPORT INFORMATION
  Report Type: 
  Country: None (occurrence: None)
  Receive Date: 20080702
  Receipt Date: 20080623
  Transmission Date: 20090109
  Serious: Yes (Hospitalization, Disabling)
  Sender: FDA-Public Use
  Company Number: DE-WYE-H04639808

PATIENT
  Sex: Male
  Weight: 67 kg

DRUGS (7)
  1. RAPAMUNE [Suspect]
     Indication: PROPHYLAXIS AGAINST TRANSPLANT REJECTION
     Route: 048
     Dates: start: 20080404
  2. URSODIOL [Concomitant]
     Indication: BILIARY ANASTOMOSIS COMPLICATION
     Dosage: DOSE AND FREQUENCY NOT SPECIFIED
     Route: 065
  3. REBETOL [Concomitant]
     Indication: ANTIVIRAL PROPHYLAXIS
     Dosage: 200 (UNITS UNKNOWN) 3-0-2
     Route: 065
     Dates: start: 20080511, end: 20080620
  4. BENZBROMARONE [Concomitant]
     Indication: HYPERURICAEMIA
     Dosage: 1 X 100 MG TWICE PER WEEK
     Route: 065
  5. PEG-INTRON [Concomitant]
     Indication: ANTIVIRAL PROPHYLAXIS
     Dosage: 100 (UNITS UNKNOWN) EVERY SUNDAY
     Route: 065
     Dates: start: 20080511, end: 20080620
  6. NEUPOGEN [Concomitant]
     Indication: LEUKOPENIA
     Dosage: 30 MIO IE EVERY 2 DAYS
     Route: 065
     Dates: start: 20080512
  7. PREDNISONE TAB [Concomitant]
     Indication: PROPHYLAXIS AGAINST TRANSPLANT REJECTION
     Dosage: 2.5 (1-0-0)
     Route: 065

REACTIONS (2)
  - HEPATIC NEOPLASM MALIGNANT RECURRENT [None]
  - PANCYTOPENIA [None]
